FAERS Safety Report 25576640 (Version 2)
Quarter: 2025Q3

REPORT INFORMATION
  Report Type: Spontaneous
  Country: US (occurrence: US)
  Receive Date: 20250718
  Receipt Date: 20250729
  Transmission Date: 20251021
  Serious: No
  Sender: GLAXOSMITHKLINE
  Company Number: US-GSK-US2025079207

PATIENT
  Age: 58 Year
  Sex: Female

DRUGS (2)
  1. NUCALA [Suspect]
     Active Substance: MEPOLIZUMAB
     Indication: Asthma-chronic obstructive pulmonary disease overlap syndrome
     Dosage: 300 MG, MO
     Dates: start: 2025
  2. NUCALA [Suspect]
     Active Substance: MEPOLIZUMAB
     Dosage: 100 MG, MO
     Dates: start: 20250624

REACTIONS (3)
  - Underdose [Unknown]
  - Off label use [Unknown]
  - Product complaint [Unknown]

NARRATIVE: CASE EVENT DATE: 20250624
